FAERS Safety Report 18253248 (Version 2)
Quarter: 2020Q4

REPORT INFORMATION
  Report Type: Spontaneous
  Country: NL (occurrence: NL)
  Receive Date: 20200910
  Receipt Date: 20201012
  Transmission Date: 20210113
  Serious: Yes (Other)
  Sender: FDA-Public Use
  Company Number: NL-SHIRE-NL202028796

PATIENT

DRUGS (1)
  1. NANOGAM [Suspect]
     Active Substance: HUMAN IMMUNOGLOBULIN G
     Indication: PRODUCT USED FOR UNKNOWN INDICATION
     Route: 042
     Dates: start: 202004, end: 2020

REACTIONS (5)
  - Exposure during pregnancy [Unknown]
  - Platelet count decreased [Recovered/Resolved]
  - Foetal exposure during pregnancy [Recovered/Resolved]
  - Lung infiltration [Recovered/Resolved]
  - Hypoxia [Recovered/Resolved]

NARRATIVE: CASE EVENT DATE: 2020
